FAERS Safety Report 6391172-0 (Version None)
Quarter: 2009Q4

REPORT INFORMATION
  Report Type: 
  Country: None (occurrence: None)
  Receive Date: 20091005
  Receipt Date: 20090924
  Transmission Date: 20100525
  Serious: Yes (Life-Threatening, Hospitalization)
  Sender: FDA-Public Use
  Company Number: A03200904426

PATIENT
  Age: 50 Year
  Sex: Female

DRUGS (4)
  1. MULTAQ - DRONEDARONE - [Suspect]
     Indication: ATRIAL FIBRILLATION
     Dosage: 400 MG BID - ORAL
     Route: 048
     Dates: start: 20090911, end: 20090923
  2. DIGOXIN [Concomitant]
  3. DILTIAZEM HYDROCHLORIDE [Concomitant]
  4. ANTICOAGULANT NOS [Concomitant]

REACTIONS (5)
  - BLOOD POTASSIUM DECREASED [None]
  - BRADYCARDIA [None]
  - CARDIAC ARREST [None]
  - EJECTION FRACTION DECREASED [None]
  - ELECTROCARDIOGRAM QT PROLONGED [None]
